FAERS Safety Report 8842581 (Version 2)
Quarter: 2015Q2

REPORT INFORMATION
  Report Type: Report from Study
  Country: US (occurrence: US)
  Receive Date: 20121016
  Receipt Date: 20150624
  Transmission Date: 20150821
  Serious: Yes (Death)
  Sender: FDA-Public Use
  Company Number: US-ROCHE-1132446

PATIENT
  Sex: Male

DRUGS (25)
  1. XELODA [Suspect]
     Active Substance: CAPECITABINE
     Indication: HEPATIC CANCER
     Dosage: FOR 14 DAYS THEN OFF FOR 7 DAYS
     Route: 048
  2. CISPLATIN. [Concomitant]
     Active Substance: CISPLATIN
     Route: 042
  3. LOMOTIL (UNITED STATES) [Concomitant]
     Dosage: PRN
     Route: 065
  4. AVASTIN [Suspect]
     Active Substance: BEVACIZUMAB
     Indication: HEPATIC CANCER
     Route: 042
  5. AVASTIN [Suspect]
     Active Substance: BEVACIZUMAB
     Indication: HEPATOBLASTOMA
  6. TARCEVA [Suspect]
     Active Substance: ERLOTINIB HYDROCHLORIDE
     Indication: NEOPLASM MALIGNANT
  7. ATENOLOL. [Concomitant]
     Active Substance: ATENOLOL
     Route: 065
  8. GEMZAR [Concomitant]
     Active Substance: GEMCITABINE HYDROCHLORIDE
     Route: 042
  9. CISPLATIN. [Concomitant]
     Active Substance: CISPLATIN
     Route: 042
  10. ARANESP [Concomitant]
     Active Substance: DARBEPOETIN ALFA
     Route: 058
  11. IMODIUM [Concomitant]
     Active Substance: LOPERAMIDE HYDROCHLORIDE
     Dosage: PRN
     Route: 065
  12. NORVASC [Concomitant]
     Active Substance: AMLODIPINE BESYLATE
     Route: 065
  13. DECADRON [Concomitant]
     Active Substance: DEXAMETHASONE
     Route: 042
  14. THALIDOMIDE [Concomitant]
     Active Substance: THALIDOMIDE
  15. TARCEVA [Suspect]
     Active Substance: ERLOTINIB HYDROCHLORIDE
     Indication: HEPATOBLASTOMA
  16. RAPAMUNE [Concomitant]
     Active Substance: SIROLIMUS
     Route: 065
  17. LISINOPRIL. [Concomitant]
     Active Substance: LISINOPRIL
     Route: 065
  18. EPIVIR [Concomitant]
     Active Substance: LAMIVUDINE
     Route: 065
  19. ANZEMET [Concomitant]
     Active Substance: DOLASETRON MESYLATE
     Route: 042
  20. XELODA [Suspect]
     Active Substance: CAPECITABINE
     Indication: NEOPLASM MALIGNANT
  21. XELODA [Suspect]
     Active Substance: CAPECITABINE
     Indication: HEPATOBLASTOMA
  22. ADRIAMYCIN [Concomitant]
     Active Substance: DOXORUBICIN HYDROCHLORIDE
  23. AVASTIN [Suspect]
     Active Substance: BEVACIZUMAB
     Indication: NEOPLASM MALIGNANT
     Route: 042
  24. TARCEVA [Suspect]
     Active Substance: ERLOTINIB HYDROCHLORIDE
     Indication: HEPATIC CANCER
     Route: 048
  25. GEMZAR [Concomitant]
     Active Substance: GEMCITABINE HYDROCHLORIDE
     Route: 042

REACTIONS (7)
  - Diarrhoea [Unknown]
  - Death [Fatal]
  - Rash [Unknown]
  - Dyspnoea [Unknown]
  - Drug tolerance decreased [Unknown]
  - Dry skin [Unknown]
  - Fatigue [Unknown]
